FAERS Safety Report 6114257-2 (Version None)
Quarter: 2009Q1

REPORT INFORMATION
  Report Type: 
  Country: None (occurrence: None)
  Receive Date: 20090312
  Receipt Date: 20081003
  Transmission Date: 20090719
  Serious: No
  Sender: FDA-Public Use
  Company Number: US-ABBOTT-08P-163-0479644-00

PATIENT
  Sex: Male
  Weight: 85.352 kg

DRUGS (3)
  1. DEPAKOTE [Suspect]
     Indication: BIPOLAR DISORDER
     Route: 048
     Dates: start: 19960201, end: 20080923
  2. DEPAKOTE [Suspect]
     Route: 048
     Dates: start: 20080923
  3. ALPRAZOLAM [Concomitant]
     Indication: ANXIETY

REACTIONS (2)
  - DRUG INEFFECTIVE [None]
  - SUICIDAL IDEATION [None]
